FAERS Safety Report 19461563 (Version 1)
Quarter: 2021Q2

REPORT INFORMATION
  Report Type: Other
  Country: US (occurrence: US)
  Receive Date: 20210625
  Receipt Date: 20210625
  Transmission Date: 20210717
  Serious: Yes (Other)
  Sender: FDA-Public Use
  Company Number: US-ROCHE-2853467

PATIENT

DRUGS (3)
  1. AVELUMAB [Suspect]
     Active Substance: AVELUMAB
     Indication: NEOPLASM MALIGNANT
     Route: 065
  2. ATEZOLIZUMAB. [Suspect]
     Active Substance: ATEZOLIZUMAB
     Indication: NEOPLASM MALIGNANT
     Route: 065
  3. DURVALUMAB. [Suspect]
     Active Substance: DURVALUMAB
     Indication: NEOPLASM MALIGNANT
     Route: 065

REACTIONS (10)
  - Acute febrile neutrophilic dermatosis [Unknown]
  - Sarcoidosis [Unknown]
  - Xerosis [Unknown]
  - Psoriasis [Unknown]
  - Pigmentation disorder [Unknown]
  - Pruritus [Unknown]
  - Dermatitis bullous [Unknown]
  - Eczema [Unknown]
  - Vitiligo [Unknown]
  - Lichenification [Unknown]
